FAERS Safety Report 5616115-6 (Version None)
Quarter: 2008Q1

REPORT INFORMATION
  Report Type: 
  Country: None (occurrence: None)
  Receive Date: 20080206
  Receipt Date: 20080125
  Transmission Date: 20080703
  Serious: Yes (Other)
  Sender: FDA-Public Use
  Company Number: JP-PFIZER INC-2008009171

PATIENT
  Age: 72 Year
  Sex: Male

DRUGS (2)
  1. UNASYN [Suspect]
     Indication: PNEUMONIA ASPIRATION
     Dosage: DAILY DOSE:4.5GRAM
     Route: 042
     Dates: start: 20071221, end: 20071228
  2. CEFAZOLIN SODIUM [Concomitant]
     Route: 042
     Dates: start: 20071217, end: 20071220

REACTIONS (2)
  - CHOLECYSTITIS [None]
  - HEPATIC ENZYME INCREASED [None]
